FAERS Safety Report 4864035-7 (Version None)
Quarter: 2005Q4

REPORT INFORMATION
  Report Type: 
  Country: None (occurrence: None)
  Receive Date: 20051219
  Receipt Date: 20051207
  Transmission Date: 20060501
  Serious: Yes (Other)
  Sender: FDA-Public Use
  Company Number: 2005165081

PATIENT
  Age: 31 Year
  Sex: Male

DRUGS (1)
  1. NORVASC [Suspect]
     Indication: HYPERTENSION
     Dosage: 10 MG (1 IN 1 D), ORAL
     Route: 048
     Dates: start: 20051102, end: 20051116

REACTIONS (1)
  - PULMONARY ALVEOLAR HAEMORRHAGE [None]
